FAERS Safety Report 15069760 (Version 1)
Quarter: 2018Q2

REPORT INFORMATION
  Report Type: Spontaneous
  Country: US (occurrence: US)
  Receive Date: 20180626
  Receipt Date: 20180626
  Transmission Date: 20180711
  Serious: No
  Sender: FDA-Public Use
  Company Number: US-AMGEN-USASP2013085739

PATIENT
  Age: 59 Year
  Sex: Female

DRUGS (6)
  1. CARBOPLATIN. [Concomitant]
     Active Substance: CARBOPLATIN
     Indication: BREAST CANCER STAGE I
     Dosage: UNK UNK, EVERY 21 DAYS
     Dates: start: 201310
  2. HERCEPTIN [Concomitant]
     Active Substance: TRASTUZUMAB
     Indication: BREAST CANCER STAGE I
     Dosage: UNK UNK, EVERY 21 DAYS
     Dates: start: 201310
  3. DECADRON [Concomitant]
     Active Substance: DEXAMETHASONE
     Indication: BREAST CANCER STAGE I
     Dosage: UNK UNK, EVERY 21 DAYS
     Dates: start: 201310
  4. TAXOTERE [Concomitant]
     Active Substance: DOCETAXEL
     Indication: BREAST CANCER STAGE I
     Dosage: UNK UNK, EVERY 21 DAYS
     Dates: start: 201310
  5. NEULASTA [Suspect]
     Active Substance: PEGFILGRASTIM
     Indication: PRODUCT USED FOR UNKNOWN INDICATION
     Dosage: UNK UNK, 2 DAYS AFTER CHEMO
     Route: 065
     Dates: start: 2013
  6. HYDROCODONE [Concomitant]
     Active Substance: HYDROCODONE
     Dosage: 5 MG, UNK

REACTIONS (6)
  - Anxiety [Unknown]
  - Arthralgia [Unknown]
  - Eczema [Unknown]
  - Psoriasis [Unknown]
  - Bone pain [Unknown]
  - Insomnia [Unknown]

NARRATIVE: CASE EVENT DATE: 2013
